FAERS Safety Report 9775232 (Version 1)
Quarter: 2013Q4

REPORT INFORMATION
  Report Type: Spontaneous
  Country: FR (occurrence: FR)
  Receive Date: 20131220
  Receipt Date: 20131220
  Transmission Date: 20140711
  Serious: Yes (Hospitalization)
  Sender: FDA-Public Use
  Company Number: FR-PFIZER INC-2013360254

PATIENT
  Age: 49 Year
  Sex: Female

DRUGS (4)
  1. RAPAMUNE [Suspect]
     Dosage: 3 MG, DAILY
     Dates: start: 2009, end: 201309
  2. ADVAGRAF [Suspect]
     Dosage: 4 MG, DAILY
     Dates: start: 2009
  3. COUMADINE [Concomitant]
     Dosage: UNK
     Dates: start: 2011
  4. OFLOCET [Concomitant]
     Dosage: UNK
     Dates: start: 20130916, end: 20130926

REACTIONS (1)
  - Cerebral vasoconstriction [Recovering/Resolving]
